FAERS Safety Report 7252023-5 (Version None)
Quarter: 2011Q1

REPORT INFORMATION
  Report Type: 
  Country: None (occurrence: None)
  Receive Date: 20110128
  Receipt Date: 20100113
  Transmission Date: 20110831
  Serious: No
  Sender: FDA-Public Use
  Company Number: US-ABBOTT-10P-163-0619102-00

PATIENT
  Sex: Female
  Weight: 64.468 kg

DRUGS (7)
  1. FOLIC ACID [Concomitant]
     Indication: PRODUCT USED FOR UNKNOWN INDICATION
  2. NASAL SPRAY [Concomitant]
     Indication: SINUS CONGESTION
     Route: 045
     Dates: start: 20100105
  3. HUMIRA [Suspect]
     Indication: RHEUMATOID ARTHRITIS
     Dates: start: 20100108
  4. METHOTREXATE [Concomitant]
     Indication: PRODUCT USED FOR UNKNOWN INDICATION
  5. CYCLOBENZAPRINE [Concomitant]
     Indication: PRODUCT USED FOR UNKNOWN INDICATION
  6. MELOXICAM [Concomitant]
     Indication: PRODUCT USED FOR UNKNOWN INDICATION
  7. PRAVASTATIN [Concomitant]
     Indication: PRODUCT USED FOR UNKNOWN INDICATION

REACTIONS (8)
  - RHINORRHOEA [None]
  - FEELING ABNORMAL [None]
  - PERIPHERAL COLDNESS [None]
  - RESPIRATORY TRACT CONGESTION [None]
  - PRODUCTIVE COUGH [None]
  - DYSPHONIA [None]
  - SPUTUM DISCOLOURED [None]
  - FEELING HOT [None]
